FAERS Safety Report 17582222 (Version 1)
Quarter: 2020Q1

REPORT INFORMATION
  Report Type: Spontaneous
  Country: US (occurrence: US)
  Receive Date: 20200325
  Receipt Date: 20200325
  Transmission Date: 20200409
  Serious: Yes (Other)
  Sender: FDA-Public Use
  Company Number: US-BAYER-2020-046848

PATIENT
  Sex: Female

DRUGS (1)
  1. CLIMARA PRO [Suspect]
     Active Substance: ESTRADIOL\LEVONORGESTREL
     Dosage: UNK
     Dates: start: 202001

REACTIONS (2)
  - Uterine haemorrhage [Not Recovered/Not Resolved]
  - Abdominal pain upper [None]

NARRATIVE: CASE EVENT DATE: 202001
